FAERS Safety Report 21022211 (Version 1)
Quarter: 2022Q2

REPORT INFORMATION
  Report Type: Other
  Country: US (occurrence: None)
  Receive Date: 20220629
  Receipt Date: 20220629
  Transmission Date: 20220721
  Serious: Yes (Other)
  Sender: FDA-Public Use
  Company Number: US-ROCHE-3127757

PATIENT

DRUGS (1)
  1. BEVACIZUMAB [Suspect]
     Active Substance: BEVACIZUMAB
     Indication: Product used for unknown indication
     Route: 050

REACTIONS (4)
  - Suspected transmission of an infectious agent via product [Unknown]
  - Endophthalmitis [Unknown]
  - Off label use [Unknown]
  - Off label use [Unknown]
